FAERS Safety Report 5472554-8 (Version None)
Quarter: 2007Q3

REPORT INFORMATION
  Report Type: 
  Country: None (occurrence: None)
  Receive Date: 20070926
  Receipt Date: 20070912
  Transmission Date: 20080115
  Serious: Yes (Disabling)
  Sender: FDA-Public Use
  Company Number: POMP-11163

PATIENT
  Age: 61 Year
  Sex: Female
  Weight: 63 kg

DRUGS (4)
  1. MYOZYME [Suspect]
     Indication: GLYCOGEN STORAGE DISEASE TYPE II
     Dosage: 20 MG/KG Q2WKS IV
     Route: 042
     Dates: start: 20060709, end: 20070101
  2. FORTECORTIN. FMR: MERCK E. AG [Concomitant]
  3. FENISTIL. MFR: ZYMA [Concomitant]
  4. ZANTAC. MFR: GLAXO LABORATORIES LIMITED [Concomitant]

REACTIONS (2)
  - FOOD ALLERGY [None]
  - HYPERVENTILATION [None]
